FAERS Safety Report 4781901-1 (Version None)
Quarter: 2005Q3

REPORT INFORMATION
  Report Type: 
  Country: None (occurrence: None)
  Receive Date: 20050927
  Receipt Date: 20050915
  Transmission Date: 20060218
  Serious: Yes (Hospitalization, Other)
  Sender: FDA-Public Use
  Company Number: 2004091092

PATIENT
  Age: 77 Year
  Sex: Female
  Weight: 99.7913 kg

DRUGS (11)
  1. NORVASC [Suspect]
     Indication: HYPERTENSION
     Dosage: 5 MG (5 MG, 1 IN 1 D), ORAL
     Route: 048
     Dates: start: 20040601, end: 20041101
  2. TIKOSYN [Suspect]
     Indication: ATRIAL FIBRILLATION
     Dosage: (BID INTERVAL:  EVERY DAY), ORAL
     Route: 048
     Dates: start: 20040623
  3. LEVOXYL [Suspect]
     Indication: ILL-DEFINED DISORDER
     Dosage: ORAL
     Route: 048
  4. TOPROL (METOPROLOL) [Concomitant]
  5. ZETIA [Concomitant]
  6. CLONIDINE [Concomitant]
  7. WARFARIN SODIUM [Concomitant]
  8. HYTRIN [Concomitant]
  9. DEMADEX [Concomitant]
  10. AVAPRO [Concomitant]
  11. DIGOXIN [Concomitant]

REACTIONS (9)
  - ALOPECIA [None]
  - ARTHROPOD BITE [None]
  - ATRIAL FIBRILLATION [None]
  - CELLULITIS [None]
  - DISEASE RECURRENCE [None]
  - HYPOTRICHOSIS [None]
  - JOINT SWELLING [None]
  - PRURITUS [None]
  - THYROID FUNCTION TEST ABNORMAL [None]
